FAERS Safety Report 8556126-4 (Version None)
Quarter: 2012Q3

REPORT INFORMATION
  Report Type: 
  Country: None (occurrence: None)
  Receive Date: 20120801
  Receipt Date: 20120727
  Transmission Date: 20120928
  Serious: Yes (Other)
  Sender: FDA-Public Use
  Company Number: DE-GENZYME-CAMP-1002347

PATIENT
  Age: 69 Year
  Sex: Male

DRUGS (1)
  1. MABCAMPATH [Suspect]
     Indication: CHRONIC LYMPHOCYTIC LEUKAEMIA
     Dosage: 30 MG, UNK (MONOTHERAPY)
     Route: 065
     Dates: start: 20120101, end: 20120501

REACTIONS (2)
  - INFUSION RELATED REACTION [None]
  - LYMPHADENOPATHY [None]
